FAERS Safety Report 15657742 (Version 2)
Quarter: 2018Q4

REPORT INFORMATION
  Report Type: Report from Study
  Country: CO (occurrence: CO)
  Receive Date: 20181126
  Receipt Date: 20181211
  Transmission Date: 20190205
  Serious: Yes (Hospitalization)
  Sender: FDA-Public Use
  Company Number: CO-BAYER-2018-215348

PATIENT
  Age: 60 Year
  Sex: Female

DRUGS (1)
  1. ADEMPAS [Suspect]
     Active Substance: RIOCIGUAT
     Indication: PULMONARY HYPERTENSION
     Dosage: 1 MG, UNK
     Route: 048
     Dates: start: 20181023

REACTIONS (3)
  - Off label use [None]
  - Underdose [None]
  - Hospitalisation [Recovered/Resolved]

NARRATIVE: CASE EVENT DATE: 20181116
